FAERS Safety Report 7880100-4 (Version None)
Quarter: 2011Q4

REPORT INFORMATION
  Report Type: 
  Country: None (occurrence: None)
  Receive Date: 20111101
  Receipt Date: 20111021
  Transmission Date: 20120403
  Serious: Yes (Other)
  Sender: FDA-Public Use
  Company Number: MX-SANOFI-AVENTIS-2011SA070041

PATIENT
  Age: 76 Year
  Sex: Female
  Weight: 63 kg

DRUGS (9)
  1. PLAVIX [Suspect]
     Indication: THROMBOSIS PROPHYLAXIS
     Route: 048
     Dates: start: 20080101, end: 20110701
  2. CARVEDILOL [Concomitant]
     Indication: ANGINA PECTORIS
     Route: 048
     Dates: start: 19960101
  3. ASPIRIN [Concomitant]
     Indication: ANGINA PECTORIS
     Route: 048
     Dates: start: 19960101
  4. ROSUVASTATIN CALCIUM [Concomitant]
     Route: 048
     Dates: start: 19840101
  5. IRBESARTAN AND HYDROCHLOROTHIAZIDE [Suspect]
     Route: 048
     Dates: start: 20060101
  6. JANUVIA [Concomitant]
     Indication: TYPE 2 DIABETES MELLITUS
     Route: 048
     Dates: start: 19960101
  7. GLYCERYL TRINITRATE [Concomitant]
     Indication: CARDIAC FAILURE
     Route: 003
     Dates: start: 19960101
  8. INSULIN GLARGINE [Suspect]
     Indication: TYPE 2 DIABETES MELLITUS
     Route: 058
     Dates: start: 20060101
  9. ROSUVASTATIN CALCIUM [Concomitant]
     Route: 048
     Dates: start: 19840101

REACTIONS (6)
  - HYPERTENSION [None]
  - ARRHYTHMIA [None]
  - HYPERGLYCAEMIA [None]
  - GASTRITIS [None]
  - ANAEMIA [None]
  - URINARY TRACT INFECTION [None]
